FAERS Safety Report 16597753 (Version 1)
Quarter: 2019Q3

REPORT INFORMATION
  Report Type: Spontaneous
  Country: AU (occurrence: AU)
  Receive Date: 20190719
  Receipt Date: 20190719
  Transmission Date: 20191004
  Serious: No
  Sender: FDA-Public Use
  Company Number: AU-BEH-2019104525

PATIENT
  Age: 80 Year
  Sex: Male

DRUGS (1)
  1. PRIVIGEN [Suspect]
     Active Substance: HUMAN IMMUNOGLOBULIN G
     Indication: MYASTHENIA GRAVIS
     Dosage: 30 GRAM, TOT
     Route: 065
     Dates: start: 20190613, end: 20190613

REACTIONS (1)
  - Skin reaction [Unknown]

NARRATIVE: CASE EVENT DATE: 20190613
